FAERS Safety Report 8247366-2 (Version None)
Quarter: 2012Q1

REPORT INFORMATION
  Report Type: 
  Country: None (occurrence: None)
  Receive Date: 20120330
  Receipt Date: 20120329
  Transmission Date: 20120608
  Serious: Yes (Life-Threatening, Hospitalization)
  Sender: FDA-Public Use
  Company Number: PL-BAYER-2012-030981

PATIENT
  Age: 23 Year
  Sex: Male
  Weight: 75 kg

DRUGS (1)
  1. BETASERON [Suspect]
     Indication: MULTIPLE SCLEROSIS
     Dosage: UNK
     Route: 058
     Dates: start: 20101229, end: 20110630

REACTIONS (1)
  - THROMBOCYTOPENIA [None]
